FAERS Safety Report 8578258-7 (Version None)
Quarter: 2012Q3

REPORT INFORMATION
  Report Type: 
  Country: None (occurrence: None)
  Receive Date: 20120808
  Receipt Date: 20120731
  Transmission Date: 20120928
  Serious: Yes (Hospitalization)
  Sender: FDA-Public Use
  Company Number: US-BAYER-2012-078985

PATIENT
  Age: 36 Year
  Sex: Female
  Weight: 58.503 kg

DRUGS (6)
  1. PERCOCET [Concomitant]
     Dosage: 1 EVERY 4-6 HOURS AS NEEDED
     Route: 048
  2. DROSPIRENONE AND ETHINYL ESTRADIOL [Suspect]
  3. YAZ [Suspect]
     Indication: CONTRACEPTION
  4. NAPROXEN (ALEVE) [Concomitant]
  5. VALTREX [Concomitant]
     Dosage: UNK UNK, PRN
     Route: 048
  6. NEXIUM [Concomitant]
     Dosage: 40 MG, DAILY
     Route: 048

REACTIONS (1)
  - PULMONARY EMBOLISM [None]
